FAERS Safety Report 7280705-8 (Version None)
Quarter: 2011Q1

REPORT INFORMATION
  Report Type: 
  Country: None (occurrence: None)
  Receive Date: 20110208
  Receipt Date: 20110131
  Transmission Date: 20110831
  Serious: Yes (Hospitalization)
  Sender: FDA-Public Use
  Company Number: B0691082A

PATIENT
  Sex: Male

DRUGS (3)
  1. RISPERDAL [Concomitant]
     Route: 048
  2. LAMICTAL [Suspect]
     Route: 048
  3. DEPAKENE [Concomitant]
     Route: 048

REACTIONS (1)
  - HYPONATRAEMIA [None]
